FAERS Safety Report 7011857-2 (Version None)
Quarter: 2010Q3

REPORT INFORMATION
  Report Type: 
  Country: None (occurrence: None)
  Receive Date: 20100924
  Receipt Date: 20100914
  Transmission Date: 20110219
  Serious: Yes (Hospitalization)
  Sender: FDA-Public Use
  Company Number: DK-ASTRAZENECA-2010SE43052

PATIENT
  Age: 508 Day
  Sex: Female
  Weight: 12 kg

DRUGS (1)
  1. SPIROCORT [Suspect]
     Indication: BRONCHITIS
     Route: 055
     Dates: start: 20100813, end: 20100909

REACTIONS (1)
  - STRABISMUS [None]
